FAERS Safety Report 20160924 (Version 1)
Quarter: 2021Q4

REPORT INFORMATION
  Report Type: Spontaneous
  Country: US (occurrence: US)
  Receive Date: 20211208
  Receipt Date: 20211208
  Transmission Date: 20220303
  Serious: No
  Sender: FDA-Public Use
  Company Number: US-BEH-2021139208

PATIENT
  Sex: Female

DRUGS (23)
  1. HIZENTRA [Suspect]
     Active Substance: HUMAN IMMUNOGLOBULIN G
     Indication: Asthma
     Dosage: 7 GRAM, QW
     Route: 058
  2. PREDNISONE [Concomitant]
     Active Substance: PREDNISONE
  3. TAMIFLU [Concomitant]
     Active Substance: OSELTAMIVIR PHOSPHATE
  4. BACTRIM DS [Concomitant]
     Active Substance: SULFAMETHOXAZOLE\TRIMETHOPRIM
  5. LINZESS [Concomitant]
     Active Substance: LINACLOTIDE
  6. SYMBICORT [Concomitant]
     Active Substance: BUDESONIDE\FORMOTEROL FUMARATE DIHYDRATE
  7. BACITRACIN;POLYMYXIN [Concomitant]
  8. BESIVANCE [Concomitant]
     Active Substance: BESIFLOXACIN
  9. DELTASONE [Concomitant]
     Active Substance: PREDNISONE
  10. LOPRESSOR [Concomitant]
     Active Substance: METOPROLOL TARTRATE
  11. DIAZEPAM [Concomitant]
     Active Substance: DIAZEPAM
  12. LYRICA [Concomitant]
     Active Substance: PREGABALIN
  13. AMANTADINE HYDROCHLORIDE [Concomitant]
     Active Substance: AMANTADINE HYDROCHLORIDE
  14. BACLOFEN [Concomitant]
     Active Substance: BACLOFEN
  15. LORAZEPAM [Concomitant]
     Active Substance: LORAZEPAM
  16. ACYCLOVIR [Concomitant]
     Active Substance: ACYCLOVIR
  17. VAGIFEM [Concomitant]
     Active Substance: ESTRADIOL
  18. CIPROFLOXACIN HYDROCHLORIDE [Concomitant]
     Active Substance: CIPROFLOXACIN HYDROCHLORIDE
  19. HYDROCODONE POLISTIREX [Concomitant]
     Active Substance: HYDROCODONE POLISTIREX
  20. OMEPRAZOLE [Concomitant]
     Active Substance: OMEPRAZOLE
  21. TIZANIDINE HYDROCHLORIDE [Concomitant]
     Active Substance: TIZANIDINE HYDROCHLORIDE
  22. OMEPRAZOLE [Concomitant]
     Active Substance: OMEPRAZOLE
  23. PROCHLORPERAZINE MALEATE [Concomitant]
     Active Substance: PROCHLORPERAZINE MALEATE

REACTIONS (5)
  - Infusion site pain [Unknown]
  - Infusion site swelling [Unknown]
  - Dyspnoea [Unknown]
  - No adverse event [Unknown]
  - Off label use [Unknown]
